FAERS Safety Report 9994149 (Version 1)
Quarter: 2014Q1

REPORT INFORMATION
  Report Type: Spontaneous
  Country: US (occurrence: US)
  Receive Date: 20140310
  Receipt Date: 20140310
  Transmission Date: 20141002
  Serious: Yes (Other)
  Sender: FDA-Public Use
  Company Number: US-ROCHE-1363055

PATIENT
  Sex: Female

DRUGS (3)
  1. XELODA [Suspect]
     Indication: BREAST CANCER
     Route: 048
     Dates: start: 20130613, end: 20140310
  2. XELODA [Suspect]
     Route: 048
     Dates: start: 20130613, end: 20140310
  3. TRAZODONE [Concomitant]
     Route: 048
     Dates: start: 20130613

REACTIONS (1)
  - Disease progression [Unknown]
